FAERS Safety Report 9434438 (Version 3)
Quarter: 2013Q4

REPORT INFORMATION
  Report Type: Spontaneous
  Country: US (occurrence: None)
  Receive Date: 20130725
  Receipt Date: 20131002
  Transmission Date: 20140711
  Serious: Yes (Hospitalization, Other)
  Sender: FDA-Public Use
  Company Number: ACO_37392_2013

PATIENT
  Age: 67 Year
  Sex: Female
  Weight: 156 kg

DRUGS (10)
  1. AMPYRA [Suspect]
     Indication: PRODUCT USED FOR UNKNOWN INDICATION
     Route: 048
     Dates: start: 20130429, end: 20130703
  2. AVONEX (INTERFERON BETA-1A) [Concomitant]
  3. VITAMIN D (COLECALCIFEROL) [Concomitant]
  4. MULTIVITAMINS (ASCORBIC ACID, ERGOCALCIFEROL, FOLIC ACID, NICOTINAMIDE, PANTHENOL, RETINOL, RIBOFLAVIN, THIAMINE HYDROCHLORIDE) [Concomitant]
  5. MEVACOR (LOVASTATIN) [Concomitant]
  6. ZANTAC (RANITIDINE HYDROCHLORIDE) [Concomitant]
  7. CELEXA (CITALOPRAM HYDROBROMIDE) [Concomitant]
  8. BACLOFEN (BACLOFEN) [Concomitant]
  9. XANAX (ALPRAZOLAM) [Concomitant]
  10. LYRICA (PREGABALIN) [Concomitant]

REACTIONS (8)
  - Convulsion [None]
  - Laceration [None]
  - Fall [None]
  - Asthenia [None]
  - Haematoma [None]
  - Multiple sclerosis [None]
  - Contusion [None]
  - Neck pain [None]
